FAERS Safety Report 21348300 (Version 1)
Quarter: 2022Q3

REPORT INFORMATION
  Report Type: Spontaneous
  Country: US (occurrence: US)
  Receive Date: 20220919
  Receipt Date: 20220919
  Transmission Date: 20221027
  Serious: Yes (Death, Other)
  Sender: FDA-Public Use
  Company Number: US-SA-SAC20220916001947

PATIENT
  Age: 47 Year
  Sex: Male

DRUGS (1)
  1. ZANTAC [Suspect]
     Active Substance: RANITIDINE HYDROCHLORIDE
     Indication: Gastrooesophageal reflux disease
     Dosage: UNK, QD
     Route: 065
     Dates: start: 201301, end: 201901

REACTIONS (1)
  - Gastric cancer stage IV [Fatal]

NARRATIVE: CASE EVENT DATE: 20200101
